FAERS Safety Report 5237744-8 (Version None)
Quarter: 2007Q1

REPORT INFORMATION
  Report Type: 
  Country: None (occurrence: None)
  Receive Date: 20070214
  Receipt Date: 20070212
  Transmission Date: 20070707
  Serious: Yes (Hospitalization)
  Sender: FDA-Public Use
  Company Number: CA-GLAXOSMITHKLINE-A0628511A

PATIENT
  Sex: Female

DRUGS (2)
  1. AVANDIA [Suspect]
  2. MULTIPLE MEDICATIONS [Concomitant]

REACTIONS (1)
  - HAEMOLYTIC ANAEMIA [None]
